FAERS Safety Report 6721365-1 (Version None)
Quarter: 2010Q2

REPORT INFORMATION
  Report Type: 
  Country: None (occurrence: None)
  Receive Date: 20100512
  Receipt Date: 20100507
  Transmission Date: 20101027
  Serious: Yes (Life-Threatening, Hospitalization, Other)
  Sender: FDA-Public Use
  Company Number: PHBS2007JP01716

PATIENT
  Sex: Male
  Weight: 70 kg

DRUGS (10)
  1. TEGRETOL [Suspect]
     Indication: STATUS EPILEPTICUS
     Dosage: 800 MG/DAY
     Route: 048
     Dates: start: 20061012, end: 20070127
  2. TEGRETOL [Suspect]
     Dosage: 400 MG PER DAY
  3. RIVOTRIL [Concomitant]
     Dosage: 1 MG/DAY
     Route: 048
     Dates: start: 20060912
  4. EXCEGRAN [Concomitant]
     Route: 065
  5. ZONISAMIDE [Concomitant]
     Dosage: 400 MG/DAY
     Route: 048
     Dates: start: 20060912
  6. ZONISAMIDE [Concomitant]
     Dosage: 200 MG PER DAY
  7. CLONAZEPAM [Concomitant]
     Dosage: 3 MG/ DAY
  8. METHYLPREDNISOLONE 4MG TAB [Concomitant]
     Dosage: UNK
  9. DEPAKENE [Concomitant]
     Dosage: 2500 MG/DAY
     Route: 048
     Dates: start: 20060912, end: 20061005
  10. PHENYTOIN [Concomitant]
     Dosage: 500 MG/DAY
     Route: 048
     Dates: start: 20000912, end: 20061012

REACTIONS (13)
  - BLOOD IMMUNOGLOBULIN A DECREASED [None]
  - BLOOD IMMUNOGLOBULIN G DECREASED [None]
  - BLOOD IMMUNOGLOBULIN M DECREASED [None]
  - C-REACTIVE PROTEIN INCREASED [None]
  - CHEST X-RAY ABNORMAL [None]
  - DRUG ERUPTION [None]
  - HYPOGAMMAGLOBULINAEMIA [None]
  - INTERSTITIAL LUNG DISEASE [None]
  - LYMPHOCYTE COUNT DECREASED [None]
  - LYMPHOCYTE STIMULATION TEST POSITIVE [None]
  - PYREXIA [None]
  - RASH [None]
  - RESPIRATORY DISTRESS [None]
